FAERS Safety Report 5648191-9 (Version None)
Quarter: 2008Q1

REPORT INFORMATION
  Report Type: 
  Country: None (occurrence: None)
  Receive Date: 20080304
  Receipt Date: 20080222
  Transmission Date: 20080703
  Serious: Yes (Life-Threatening, Hospitalization)
  Sender: FDA-Public Use
  Company Number: JP-NOVOPROD-271381

PATIENT
  Sex: Male
  Weight: 55 kg

DRUGS (4)
  1. NOVORAPID CHU FLEXPEN [Suspect]
     Indication: TYPE 2 DIABETES MELLITUS
     Dosage: 9 IU, QD
     Route: 058
  2. PENFILL 30R CHU [Suspect]
     Indication: TYPE 2 DIABETES MELLITUS
     Dosage: 27 IU, QD
     Route: 058
     Dates: start: 19990101
  3. MICARDIS [Concomitant]
     Indication: HYPERTENSION
     Route: 048
  4. ZYLORIC                            /00003301/ [Concomitant]
     Indication: HYPERURICAEMIA
     Route: 048

REACTIONS (2)
  - DEMENTIA ALZHEIMER'S TYPE [None]
  - HYPOGLYCAEMIC COMA [None]
